FAERS Safety Report 6414463-3 (Version None)
Quarter: 2009Q4

REPORT INFORMATION
  Report Type: 
  Country: None (occurrence: None)
  Receive Date: 20091026
  Receipt Date: 20091019
  Transmission Date: 20100525
  Serious: Yes (Death, Hospitalization, Other)
  Sender: FDA-Public Use
  Company Number: PHHO2007MX02859

PATIENT
  Sex: Female

DRUGS (12)
  1. DIOVAN HCT [Suspect]
     Indication: HYPERTENSION
     Dosage: HALF TABLET OF 160/12.5MG DAILY
     Route: 048
     Dates: start: 20060601
  2. FUROSEMIDE [Concomitant]
     Indication: HYPERTENSION
     Dosage: 40 MG/DAY
  3. ESPIRONOLACTONA [Concomitant]
     Indication: HYPERTENSION
     Dosage: 1 TAB/DAY
     Route: 048
  4. GLYBURIDE AND METFORMIN HCL [Concomitant]
     Indication: DIABETES MELLITUS
     Dosage: 3 TABLETS/DAY
     Route: 048
  5. NAPROXEN [Concomitant]
     Indication: ARTHRALGIA
     Dosage: 1 TABLET/DAY
     Route: 048
  6. BUDESONIDE [Concomitant]
  7. COMBIVENT [Concomitant]
  8. AMBROXOL [Concomitant]
  9. BUMETANIDE [Concomitant]
     Dosage: 1 MG PER DAY
  10. AMLODIPINE [Concomitant]
     Dosage: 5 MG
  11. PLAVIX [Concomitant]
  12. SINGULAIR [Concomitant]

REACTIONS (13)
  - ASTHMATIC CRISIS [None]
  - CARDIAC DISORDER [None]
  - CHEST PAIN [None]
  - CHRONIC OBSTRUCTIVE PULMONARY DISEASE [None]
  - COUGH [None]
  - DYSPNOEA [None]
  - HYPOTENSION [None]
  - LUNG INFECTION [None]
  - MEDICAL DEVICE COMPLICATION [None]
  - PNEUMONIA [None]
  - RESPIRATORY ARREST [None]
  - RESPIRATORY DISORDER [None]
  - SURGERY [None]
